FAERS Safety Report 18307579 (Version 1)
Quarter: 2020Q3

REPORT INFORMATION
  Report Type: Spontaneous
  Country: CN (occurrence: CN)
  Receive Date: 20200924
  Receipt Date: 20200924
  Transmission Date: 20201103
  Serious: Yes (Hospitalization, Other)
  Sender: FDA-Public Use
  Company Number: CN-PFIZER INC-2020367149

PATIENT
  Age: 44 Year
  Sex: Male
  Weight: 73 kg

DRUGS (4)
  1. SODIUM CHLORIDE. [Concomitant]
     Active Substance: SODIUM CHLORIDE
     Dosage: 500 ML, 2X/DAY
     Route: 041
     Dates: start: 20200905, end: 20200906
  2. METHOTREXATE. [Suspect]
     Active Substance: METHOTREXATE
     Indication: CHEMOTHERAPY
     Dosage: 6.4 G, 1X/DAY
     Route: 041
     Dates: start: 20200904, end: 20200904
  3. CYTOSAR [Suspect]
     Active Substance: CYTARABINE
     Indication: CHEMOTHERAPY
     Dosage: 3.5 G, 2X/DAY
     Route: 041
     Dates: start: 20200905, end: 20200906
  4. SODIUM CHLORIDE. [Concomitant]
     Active Substance: SODIUM CHLORIDE
     Indication: CHEMOTHERAPY
     Dosage: 500 ML, 1X/DAY
     Route: 041
     Dates: start: 20200904, end: 20200904

REACTIONS (4)
  - White blood cell count decreased [Unknown]
  - Thrombocytopenia [Unknown]
  - Neutropenia [Unknown]
  - Haemoglobin decreased [Unknown]

NARRATIVE: CASE EVENT DATE: 20200914
